FAERS Safety Report 24875332 (Version 1)
Quarter: 2025Q1

REPORT INFORMATION
  Report Type: Spontaneous
  Country: US (occurrence: None)
  Receive Date: 20250122
  Receipt Date: 20250122
  Transmission Date: 20250408
  Serious: Yes (Other)
  Sender: FDA-CTU
  Company Number: None

PATIENT
  Age: 73 Year
  Sex: Male
  Weight: 110 kg

DRUGS (2)
  1. OHTUVAYRE [Suspect]
     Active Substance: ENSIFENTRINE
     Indication: Chronic obstructive pulmonary disease
     Dosage: FREQUENCY : TWICE A DAY;?OTHER ROUTE : NEBULIZED;?
     Route: 050
     Dates: start: 20241022, end: 20250122
  2. OHTUVAYRE [Concomitant]
     Active Substance: ENSIFENTRINE
     Dates: start: 20241029, end: 20250122

REACTIONS (4)
  - Depression [None]
  - Suicidal ideation [None]
  - Fatigue [None]
  - Decreased activity [None]

NARRATIVE: CASE EVENT DATE: 20250121
